FAERS Safety Report 8145040-4 (Version None)
Quarter: 2012Q1

REPORT INFORMATION
  Report Type: 
  Country: None (occurrence: None)
  Receive Date: 20120217
  Receipt Date: 20120209
  Transmission Date: 20120608
  Serious: Yes (Hospitalization, Other)
  Sender: FDA-Public Use
  Company Number: PHHY2012IT011845

PATIENT
  Sex: Female

DRUGS (2)
  1. EXJADE [Suspect]
     Indication: IRON OVERLOAD
     Dosage: 23 MG/KG, DAILY
     Route: 048
     Dates: start: 20090101, end: 20120129
  2. D-ALPHA TOCOPHEROL [Concomitant]

REACTIONS (2)
  - HAEMATEMESIS [None]
  - GASTRIC MUCOSAL LESION [None]
